FAERS Safety Report 5830900-7 (Version None)
Quarter: 2008Q3

REPORT INFORMATION
  Report Type: 
  Country: None (occurrence: None)
  Receive Date: 20080801
  Receipt Date: 20080124
  Transmission Date: 20090109
  Serious: No
  Sender: FDA-Public Use
  Company Number: US-BRISTOL-MYERS SQUIBB COMPANY-14052740

PATIENT
  Age: 72 Year
  Sex: Male
  Weight: 103 kg

DRUGS (4)
  1. COUMADIN [Suspect]
     Indication: ATRIAL FIBRILLATION
     Dosage: 1 DOSAGE FORM -2.5 MG FOR 4 DAYS AND 5MG FOR 3 DAYS.
     Route: 048
  2. SOTALOL HCL [Suspect]
  3. FUROSEMIDE [Suspect]
  4. PREDNISONE [Concomitant]

REACTIONS (1)
  - MUSCULAR WEAKNESS [None]
